FAERS Safety Report 7088177-3 (Version None)
Quarter: 2010Q4

REPORT INFORMATION
  Report Type: 
  Country: None (occurrence: None)
  Receive Date: 20101108
  Receipt Date: 20101027
  Transmission Date: 20110411
  Serious: Yes (Hospitalization)
  Sender: FDA-Public Use
  Company Number: JP-ELI_LILLY_AND_COMPANY-JP201010004049

PATIENT
  Sex: Male
  Weight: 51.4 kg

DRUGS (3)
  1. GEMCITABINE HCL [Suspect]
     Indication: GALLBLADDER CANCER
     Dosage: 1520 MG, WEEKLY FOR THREE WEEKS FOLLOWED BY ONE WEEK REST
     Route: 042
     Dates: start: 20100702, end: 20100924
  2. BLINDED THERAPY [Suspect]
     Indication: GALLBLADDER CANCER
     Dosage: 1 ML, WEEKLY (1/W)
     Route: 058
     Dates: start: 20100702
  3. AMLODIPINE [Concomitant]
     Indication: HYPERTENSION
     Dosage: 5 MG, DAILY (1/D)
     Route: 048

REACTIONS (7)
  - CARDIAC FAILURE [None]
  - HAEMATOCRIT DECREASED [None]
  - HAEMOGLOBIN DECREASED [None]
  - PLEURAL EFFUSION [None]
  - RED BLOOD CELL COUNT DECREASED [None]
  - RENAL IMPAIRMENT [None]
  - THROMBOTIC THROMBOCYTOPENIC PURPURA [None]
